FAERS Safety Report 9148578 (Version 1)
Quarter: 2013Q1

REPORT INFORMATION
  Report Type: Spontaneous
  Country: IT (occurrence: IT)
  Receive Date: 20130308
  Receipt Date: 20130308
  Transmission Date: 20140127
  Serious: Yes (Other)
  Sender: FDA-Public Use
  Company Number: IT-JNJFOC-20130214408

PATIENT
  Age: 10 Year
  Sex: Male
  Weight: 42 kg

DRUGS (1)
  1. RISPERDAL [Suspect]
     Indication: MENTAL RETARDATION
     Route: 065
     Dates: start: 20120527, end: 20130129

REACTIONS (6)
  - Blood creatine phosphokinase increased [Unknown]
  - Blood lactate dehydrogenase increased [Unknown]
  - Bundle branch block [Unknown]
  - Blood alkaline phosphatase increased [Unknown]
  - Hepatic enzyme increased [Unknown]
  - Hyperprolactinaemia [Unknown]
